FAERS Safety Report 8216462-8 (Version None)
Quarter: 2012Q1

REPORT INFORMATION
  Report Type: 
  Country: None (occurrence: None)
  Receive Date: 20120316
  Receipt Date: 20120302
  Transmission Date: 20120608
  Serious: No
  Sender: FDA-Public Use
  Company Number: US-B.I. PHARMACEUTICALS,INC./RIDGEFIELD-2011-BP-17066BP

PATIENT
  Sex: Female

DRUGS (15)
  1. LASIX [Concomitant]
     Indication: JOINT SWELLING
  2. DILTIAZEM HCL [Concomitant]
     Indication: CARDIAC DISORDER
     Dosage: 60 MG
     Route: 048
     Dates: start: 20110801, end: 20120101
  3. CENTRUM MULTIVIT [Concomitant]
     Indication: PROPHYLAXIS
  4. PRADAXA [Suspect]
     Indication: CEREBROVASCULAR ACCIDENT PROPHYLAXIS
  5. LASIX [Concomitant]
     Indication: CARDIAC FAILURE CONGESTIVE
     Route: 048
     Dates: start: 20110428
  6. LASIX [Concomitant]
     Indication: OEDEMA PERIPHERAL
     Dosage: 40 MG
     Route: 048
  7. DIGOXIN [Concomitant]
     Indication: CARDIAC FAILURE CONGESTIVE
     Dosage: 125 MCG
     Route: 048
     Dates: start: 20120201
  8. CALTRATE W/ VIT D [Concomitant]
     Indication: SUPPLEMENTATION THERAPY
     Dosage: 600 MG
     Route: 048
     Dates: start: 20020101
  9. VITAMIN B-12 [Concomitant]
     Indication: NEUROPATHY PERIPHERAL
     Route: 060
  10. PRADAXA [Suspect]
     Indication: MITRAL VALVE PROLAPSE
  11. CENTRUM MULTIVIT [Concomitant]
     Indication: SUPPLEMENTATION THERAPY
     Route: 048
     Dates: start: 20070101
  12. PRADAXA [Suspect]
     Indication: ATRIAL FIBRILLATION
     Dosage: 150 MG
     Route: 048
     Dates: start: 20110328
  13. LASIX [Concomitant]
     Indication: CARDIAC DISORDER
     Dosage: 20 MG
     Route: 048
     Dates: start: 20110428
  14. DILTIAZEM HCL [Concomitant]
     Indication: ATRIAL FIBRILLATION
  15. CALTRATE W/ VIT D [Concomitant]
     Indication: PROPHYLAXIS

REACTIONS (13)
  - ABDOMINAL DISCOMFORT [None]
  - CONTUSION [None]
  - EXCESSIVE EYE BLINKING [None]
  - SWOLLEN TONGUE [None]
  - HEART RATE INCREASED [None]
  - OCULAR HYPERAEMIA [None]
  - DYSPHAGIA [None]
  - TONGUE INJURY [None]
  - EAR PRURITUS [None]
  - DYSPEPSIA [None]
  - TONGUE DISORDER [None]
  - FLATULENCE [None]
  - PRURITUS [None]
